FAERS Safety Report 9276949 (Version 1)
Quarter: 2013Q2

REPORT INFORMATION
  Report Type: Spontaneous
  Country: TW (occurrence: None)
  Receive Date: 20130501
  Receipt Date: 20130501
  Transmission Date: 20140414
  Serious: Yes (Other)
  Sender: FDA-Public Use
  Company Number: TW-1197902

PATIENT
  Age: 6 Year
  Sex: 0

DRUGS (3)
  1. ALCAINE [Suspect]
     Indication: EYE IRRITATION
     Route: 047
     Dates: start: 20130417, end: 20130417
  2. MYDRIACYL [Suspect]
     Indication: OPHTHALMOLOGICAL EXAMINATION
     Route: 047
     Dates: start: 20130417, end: 20130417
  3. CYCLOGYL [Suspect]
     Indication: OPHTHALMOLOGICAL EXAMINATION
     Route: 047
     Dates: start: 20130417, end: 20130417

REACTIONS (4)
  - Abnormal behaviour [None]
  - Illusion [None]
  - Eye irritation [None]
  - Expired drug administered [None]
